FAERS Safety Report 7269872-X (Version None)
Quarter: 2011Q1

REPORT INFORMATION
  Report Type: 
  Country: None (occurrence: None)
  Receive Date: 20110202
  Receipt Date: 20110118
  Transmission Date: 20110831
  Serious: Yes (Hospitalization, Other)
  Sender: FDA-Public Use
  Company Number: PHHY2011IT05374

PATIENT
  Age: 19 Year
  Sex: Female

DRUGS (2)
  1. CHOCHOLATE [Concomitant]
  2. ALBUTEROL [Suspect]
     Indication: ASTHMA

REACTIONS (5)
  - MITRAL VALVE INCOMPETENCE [None]
  - ATRIAL FIBRILLATION [None]
  - DRUG ABUSE [None]
  - PALPITATIONS [None]
  - ELECTROCARDIOGRAM PR SHORTENED [None]
